FAERS Safety Report 9659127 (Version 1)
Quarter: 2013Q4

REPORT INFORMATION
  Report Type: Spontaneous
  Country: US (occurrence: US)
  Receive Date: 20131031
  Receipt Date: 20131031
  Transmission Date: 20140711
  Serious: No
  Sender: FDA-Public Use
  Company Number: US-B.I. PHARMACEUTICALS,INC./RIDGEFIELD-2013-BI-33534BP

PATIENT
  Sex: Female
  Weight: 51 kg

DRUGS (15)
  1. SPIRIVA [Suspect]
     Indication: CHRONIC OBSTRUCTIVE PULMONARY DISEASE
     Dosage: 18 MCG
     Route: 055
     Dates: start: 2006
  2. NORVASC [Concomitant]
     Indication: HYPERTENSION
     Dosage: 5 MG
     Route: 048
     Dates: start: 2010
  3. PREDNISONE [Concomitant]
     Indication: CHRONIC OBSTRUCTIVE PULMONARY DISEASE
     Dosage: 5 MG
     Route: 048
     Dates: start: 2008
  4. AMBIEN [Concomitant]
     Indication: INSOMNIA
     Dosage: 5 MG
     Route: 048
     Dates: end: 2010
  5. ALBUTEROL [Concomitant]
     Indication: CHRONIC OBSTRUCTIVE PULMONARY DISEASE
     Route: 055
     Dates: start: 2005
  6. IPRATROPIUM [Concomitant]
     Indication: CHRONIC OBSTRUCTIVE PULMONARY DISEASE
     Dosage: 4 PUF
     Route: 055
     Dates: start: 2005
  7. FLEXERIL [Concomitant]
     Indication: BACK PAIN
     Dosage: 10 MG
     Route: 048
     Dates: start: 2003
  8. FLEXERIL [Concomitant]
     Indication: TREMOR
  9. FLEXERIL [Concomitant]
     Indication: MUSCLE SPASMS
  10. ATIVAN [Concomitant]
     Indication: TREMOR
     Dosage: 1 MG
     Route: 048
     Dates: start: 2010
  11. ATIVAN [Concomitant]
     Indication: MUSCLE SPASMS
  12. ALLERGY SHOT [Concomitant]
     Indication: HYPERSENSITIVITY
     Dates: start: 2000
  13. COZAAR [Concomitant]
     Indication: HYPERTENSION
     Dosage: 100 MG
     Route: 048
     Dates: start: 2010
  14. ADVAIR [Concomitant]
     Indication: CHRONIC OBSTRUCTIVE PULMONARY DISEASE
     Dosage: STRENGTH: 250/50 MCG; DAILY DOSE: 250/50 MCG
     Route: 055
     Dates: start: 2008
  15. PREMPRO [Concomitant]
     Indication: MENOPAUSE
     Route: 048
     Dates: start: 2000

REACTIONS (1)
  - Immunoglobulins abnormal [Not Recovered/Not Resolved]
